FAERS Safety Report 6298389-4 (Version None)
Quarter: 2009Q3

REPORT INFORMATION
  Report Type: 
  Country: None (occurrence: None)
  Receive Date: 20090805
  Receipt Date: 20090731
  Transmission Date: 20100115
  Serious: Yes (Hospitalization)
  Sender: FDA-Public Use
  Company Number: PHHO2009US06264

PATIENT
  Sex: Female
  Weight: 57 kg

DRUGS (3)
  1. BLINDED ACZ885 ACZ+SOLINF+COPD [Suspect]
     Dosage: 10 DOSES
     Route: 042
     Dates: start: 20080910, end: 20090422
  2. BLINDED NO TREATMENT RECEIVED NOMED [Suspect]
     Dosage: 10 DOSES
     Route: 042
     Dates: start: 20080910, end: 20090422
  3. BLINDED PLACEBO COMP-PLA+ [Suspect]
     Dosage: 10 DOSES
     Route: 042
     Dates: start: 20080910, end: 20090422

REACTIONS (4)
  - DEBRIDEMENT [None]
  - STAPHYLOCOCCAL INFECTION [None]
  - SUBCUTANEOUS ABSCESS [None]
  - SWELLING [None]
